FAERS Safety Report 9352090 (Version 2)
Quarter: 2013Q3

REPORT INFORMATION
  Report Type: Spontaneous
  Country: US (occurrence: US)
  Receive Date: 20130617
  Receipt Date: 20130715
  Transmission Date: 20140515
  Serious: Yes (Other)
  Sender: FDA-Public Use
  Company Number: US-COVIDIEN/TYCO HEALTHCARE/MALLINCKRODT-T201303329

PATIENT
  Sex: Female

DRUGS (1)
  1. GABLOFEN [Suspect]
     Indication: MUSCLE SPASTICITY
     Dosage: 200 MCG/DAY
     Route: 037

REACTIONS (6)
  - Cerebrospinal fluid leakage [Unknown]
  - Meningitis [Unknown]
  - Infection [Unknown]
  - Wound secretion [Unknown]
  - Wound dehiscence [Unknown]
  - Device failure [Recovered/Resolved]
